FAERS Safety Report 14479113 (Version 1)
Quarter: 2018Q1

REPORT INFORMATION
  Report Type: Spontaneous
  Country: DE (occurrence: DE)
  Receive Date: 20180202
  Receipt Date: 20180202
  Transmission Date: 20180509
  Serious: Yes (Hospitalization, Other)
  Sender: FDA-Public Use
  Company Number: DE-B.I. PHARMACEUTICALS,INC./RIDGEFIELD-2018-BI-004852

PATIENT
  Age: 65 Year
  Sex: Female

DRUGS (2)
  1. VARGATEF [Suspect]
     Active Substance: NINTEDANIB
     Indication: NON-SMALL CELL LUNG CANCER
     Route: 048
     Dates: start: 201509, end: 201601
  2. DOCETAXEL. [Concomitant]
     Active Substance: DOCETAXEL
     Indication: PRODUCT USED FOR UNKNOWN INDICATION
     Route: 065
     Dates: start: 201509, end: 201601

REACTIONS (19)
  - Renal failure [Unknown]
  - Performance status decreased [Unknown]
  - Paraesthesia [Unknown]
  - Mucosal inflammation [Unknown]
  - Dehydration [Unknown]
  - Cough [Unknown]
  - Nausea [Unknown]
  - Stenosis [Unknown]
  - Alopecia [Unknown]
  - Night sweats [Unknown]
  - Malignant neoplasm progression [Unknown]
  - Fatigue [Unknown]
  - Leukopenia [Unknown]
  - Selective eating disorder [Unknown]
  - Weight decreased [Unknown]
  - Sputum discoloured [Unknown]
  - Vomiting [Unknown]
  - Fluid intake restriction [Unknown]
  - Fistula [Unknown]
